FAERS Safety Report 7200811-3 (Version None)
Quarter: 2010Q4

REPORT INFORMATION
  Report Type: 
  Country: None (occurrence: None)
  Receive Date: 20101228
  Receipt Date: 20101223
  Transmission Date: 20110411
  Serious: Yes (Other)
  Sender: FDA-Public Use
  Company Number: FR-PFIZER INC-2010178208

PATIENT
  Age: 47 Year
  Sex: Male

DRUGS (5)
  1. ZOLOFT [Suspect]
     Dosage: 50 MG, 1X/DAY
  2. ZOLOFT [Suspect]
     Dosage: 100 MG/DAY
  3. CLOZAPINE [Concomitant]
  4. SOLIAN [Concomitant]
  5. TEMESTA [Concomitant]

REACTIONS (1)
  - DEAFNESS [None]
